FAERS Safety Report 4947279-5 (Version None)
Quarter: 2006Q1

REPORT INFORMATION
  Report Type: 
  Country: None (occurrence: None)
  Receive Date: 20060313
  Receipt Date: 20060227
  Transmission Date: 20060701
  Serious: Yes (Other)
  Sender: FDA-Public Use
  Company Number: HQWYE132403MAR06

PATIENT
  Age: 2 Day
  Sex: Female

DRUGS (4)
  1. EFFEXOR XR [Suspect]
     Indication: DRUG EXPOSURE DURING PREGNANCY
  2. BUSPAR [Concomitant]
  3. LAMICTAL [Concomitant]
  4. BUPROPION (AMFEBUTAMONE) [Concomitant]

REACTIONS (3)
  - AGITATION NEONATAL [None]
  - DRUG EXPOSURE DURING PREGNANCY [None]
  - DYSKINESIA NEONATAL [None]
